FAERS Safety Report 20777835 (Version 2)
Quarter: 2022Q2

REPORT INFORMATION
  Report Type: Spontaneous
  Country: US (occurrence: US)
  Receive Date: 20220503
  Receipt Date: 20220504
  Transmission Date: 20220721
  Serious: Yes (Hospitalization)
  Sender: FDA-Public Use
  Company Number: US-ELI_LILLY_AND_COMPANY-US202204011662

PATIENT
  Age: 70 Year
  Sex: Female

DRUGS (4)
  1. HUMALOG [Suspect]
     Active Substance: INSULIN LISPRO
     Indication: Product used for unknown indication
     Dosage: UNK, UNKNOWN
     Route: 065
     Dates: start: 1959
  2. HUMALOG [Suspect]
     Active Substance: INSULIN LISPRO
     Indication: Product used for unknown indication
     Dosage: 8 U, DAILY
     Route: 065
     Dates: start: 1959
  3. LANTUS [Concomitant]
     Active Substance: INSULIN GLARGINE
     Indication: Product used for unknown indication
  4. TOUJEO [Concomitant]
     Active Substance: INSULIN GLARGINE
     Indication: Product used for unknown indication

REACTIONS (7)
  - Loss of consciousness [Recovered/Resolved]
  - Blood glucose increased [Recovered/Resolved]
  - Memory impairment [Unknown]
  - Vision blurred [Unknown]
  - Spinal disorder [Unknown]
  - Muscular weakness [Unknown]
  - Accidental underdose [Unknown]

NARRATIVE: CASE EVENT DATE: 20191225
